FAERS Safety Report 9505668 (Version 1)
Quarter: 2013Q1

REPORT INFORMATION
  Report Type: Spontaneous
  Country: US (occurrence: None)
  Receive Date: 20130220
  Receipt Date: 20130220
  Transmission Date: 20140127
  Serious: No
  Sender: FDA-Public Use
  Company Number: 1000039982

PATIENT
  Sex: Female

DRUGS (5)
  1. VIIBRYD [Suspect]
     Indication: DEPRESSION
     Dosage: 10MG (10MG, 1 IN 1D) ORAL
     Route: 048
     Dates: start: 20120820, end: 20120826
  2. VIIBRYD [Suspect]
     Indication: DEPRESSION
     Dosage: 40MG (40MG, 1 IN 1D) ORAL
     Route: 048
     Dates: start: 20120903, end: 20121026
  3. EVISTA (RALOXIFENE HYDROCHLORIDE) (RALOXIFENE HYDROCHLORIDE) [Concomitant]
  4. LUNESTA (ESZOPICLONE) (ESZOPICLONE) [Concomitant]
  5. COREG (CARVEDILOL) (CARVEDILOL) [Concomitant]

REACTIONS (1)
  - Alopecia [None]
